FAERS Safety Report 8283466-9 (Version None)
Quarter: 2012Q2

REPORT INFORMATION
  Report Type: 
  Country: None (occurrence: None)
  Receive Date: 20120413
  Receipt Date: 20111205
  Transmission Date: 20120825
  Serious: Yes (Death)
  Sender: FDA-Public Use
  Company Number: PHHY2011US108274

PATIENT
  Age: 50 Year
  Sex: Male

DRUGS (3)
  1. COCAINE [Suspect]
  2. METOPROLOL TARTRATE [Suspect]
  3. VERAPAMIL [Suspect]

REACTIONS (1)
  - COMPLETED SUICIDE [None]
